FAERS Safety Report 5500264-7 (Version None)
Quarter: 2007Q4

REPORT INFORMATION
  Report Type: 
  Country: None (occurrence: None)
  Receive Date: 20071029
  Receipt Date: 20071019
  Transmission Date: 20080405
  Serious: Yes (Other)
  Sender: FDA-Public Use
  Company Number: CH-ELI_LILLY_AND_COMPANY-CH200710004847

PATIENT
  Age: 18 Year
  Sex: Male

DRUGS (2)
  1. ZYPREXA [Suspect]
     Indication: SCHIZOPHRENIA
     Dosage: 10 MG, DAILY (1/D)
     Route: 048
     Dates: start: 20060801
  2. HALDOL [Concomitant]
     Indication: SCHIZOPHRENIA, PARANOID TYPE
     Dosage: 3 MG, DAILY (1/D)
     Route: 048
     Dates: start: 20070817

REACTIONS (1)
  - DEEP VEIN THROMBOSIS [None]
